FAERS Safety Report 7682006-2 (Version None)
Quarter: 2011Q3

REPORT INFORMATION
  Report Type: 
  Country: None (occurrence: None)
  Receive Date: 20110804
  Receipt Date: 20110720
  Transmission Date: 20111222
  Serious: Yes (Death, Life-Threatening, Hospitalization, Other)
  Sender: FDA-Public Use
  Company Number: 2011MA009205

PATIENT
  Age: 75 Year
  Sex: Female

DRUGS (2)
  1. TRAMADOL HYDROCHLORIDE [Suspect]
     Indication: OVERDOSE
  2. FLUOXETINE [Concomitant]

REACTIONS (9)
  - OVERDOSE [None]
  - DRUG INTERACTION [None]
  - FAMILY STRESS [None]
  - RESPIRATORY FAILURE [None]
  - CARDIO-RESPIRATORY ARREST [None]
  - COMPLETED SUICIDE [None]
  - ACUTE PULMONARY OEDEMA [None]
  - FOAMING AT MOUTH [None]
  - APNOEA [None]
